FAERS Safety Report 24606302 (Version 1)
Quarter: 2024Q4

REPORT INFORMATION
  Report Type: Spontaneous
  Country: CN (occurrence: CN)
  Receive Date: 20241112
  Receipt Date: 20241112
  Transmission Date: 20250115
  Serious: Yes (Hospitalization)
  Sender: ENDO
  Company Number: CN-ENDO USA, INC.-2024-050613

PATIENT
  Age: 40 Year
  Sex: Female

DRUGS (1)
  1. ETOMIDATE [Suspect]
     Active Substance: ETOMIDATE
     Indication: Product used for unknown indication
     Dosage: UNK UNKNOWN, WEEKLY (IN E-CIGARETTES; AVERAGING 2 E-CIGARETTES/WEEK)

REACTIONS (4)
  - Adrenal insufficiency [Recovered/Resolved]
  - Drug abuse [Unknown]
  - Hypokalaemia [Recovered/Resolved]
  - Hypertension [Recovered/Resolved]
